FAERS Safety Report 6349734-2 (Version None)
Quarter: 2009Q3

REPORT INFORMATION
  Report Type: 
  Country: None (occurrence: None)
  Receive Date: 20090911
  Receipt Date: 20090903
  Transmission Date: 20100115
  Serious: Yes (Other)
  Sender: FDA-Public Use
  Company Number: US-ABBOTT-09P-163-0595357-00

PATIENT
  Age: 24 Year
  Sex: Female

DRUGS (2)
  1. DEPAKENE [Suspect]
     Indication: CONVULSION
     Dates: start: 19890101
  2. METFORMIN HCL [Concomitant]
     Indication: DRUG USE FOR UNKNOWN INDICATION
     Dates: start: 20070101

REACTIONS (2)
  - DENTAL CARIES [None]
  - POLYCYSTIC OVARIES [None]
